FAERS Safety Report 5669396-7 (Version None)
Quarter: 2008Q1

REPORT INFORMATION
  Report Type: 
  Country: None (occurrence: None)
  Receive Date: 20080317
  Receipt Date: 20080306
  Transmission Date: 20080703
  Serious: Yes (Other)
  Sender: FDA-Public Use
  Company Number: US-JNJFOC-20080302363

PATIENT
  Sex: Female
  Weight: 74.84 kg

DRUGS (2)
  1. REMICADE [Suspect]
     Route: 042
  2. REMICADE [Suspect]
     Indication: CROHN'S DISEASE
     Route: 042

REACTIONS (6)
  - CARPAL TUNNEL SYNDROME [None]
  - EYE DISORDER [None]
  - HYPOAESTHESIA [None]
  - MALAISE [None]
  - MULTIPLE SCLEROSIS [None]
  - PALPITATIONS [None]
